FAERS Safety Report 7349102-0 (Version None)
Quarter: 2011Q1

REPORT INFORMATION
  Report Type: 
  Country: None (occurrence: None)
  Receive Date: 20110314
  Receipt Date: 20110302
  Transmission Date: 20110831
  Serious: Yes (Death)
  Sender: FDA-Public Use
  Company Number: US-CELGENEUS-163-21880-10041735

PATIENT
  Sex: Male

DRUGS (1)
  1. REVLIMID [Suspect]
     Indication: MYELODYSPLASTIC SYNDROME
     Dosage: 10 MILLIGRAM
     Route: 048
     Dates: start: 20100211

REACTIONS (8)
  - DYSPEPSIA [None]
  - HEADACHE [None]
  - RASH [None]
  - PRURITUS [None]
  - DEATH [None]
  - NAUSEA [None]
  - BLISTER [None]
  - THERMAL BURN [None]
